FAERS Safety Report 12434963 (Version 1)
Quarter: 2016Q2

REPORT INFORMATION
  Report Type: Spontaneous
  Country: US (occurrence: US)
  Receive Date: 20160603
  Receipt Date: 20160603
  Transmission Date: 20160815
  Serious: No
  Sender: FDA-Public Use
  Company Number: US-ROCHE-1713014

PATIENT
  Age: 39 Year
  Sex: Female

DRUGS (7)
  1. ALEVE [Concomitant]
     Active Substance: NAPROXEN SODIUM
  2. DICYCLOMINE [Concomitant]
     Active Substance: DICYCLOMINE HYDROCHLORIDE
  3. KLONOPIN [Suspect]
     Active Substance: CLONAZEPAM
     Indication: DRUG DEPENDENCE
     Route: 065
  4. ADVIL [Concomitant]
     Active Substance: IBUPROFEN
  5. NALTREXONE [Suspect]
     Active Substance: NALTREXONE
     Indication: DRUG DEPENDENCE
     Route: 030
  6. ROBAXIN [Concomitant]
     Active Substance: METHOCARBAMOL
  7. CLONIDINE. [Concomitant]
     Active Substance: CLONIDINE
     Route: 065

REACTIONS (13)
  - Blood glucose increased [Unknown]
  - Negative thoughts [Unknown]
  - Paraesthesia [Unknown]
  - Drug withdrawal syndrome [Unknown]
  - Weight decreased [Unknown]
  - Urine ketone body [Unknown]
  - Insomnia [Unknown]
  - Nausea [Unknown]
  - Decreased appetite [Unknown]
  - Drug ineffective [Unknown]
  - Hyperhidrosis [Unknown]
  - Diarrhoea [Unknown]
  - Drug dependence [Unknown]
